FAERS Safety Report 10031485 (Version 1)
Quarter: 2014Q1

REPORT INFORMATION
  Report Type: Not Available
  Country: FR (occurrence: FR)
  Receive Date: 20140324
  Receipt Date: 20140324
  Transmission Date: 20141002
  Serious: Yes (Hospitalization)
  Sender: FDA-Public Use
  Company Number: FR-ASTELLAS-2014EU002429

PATIENT
  Age: 10 Day
  Sex: Male

DRUGS (2)
  1. PROGRAF [Suspect]
     Indication: FOETAL EXPOSURE DURING PREGNANCY
     Dosage: 7 MG, BID
     Route: 064
     Dates: end: 20140119
  2. CORTANCYL [Concomitant]
     Indication: FOETAL EXPOSURE DURING PREGNANCY
     Dosage: UNK
     Route: 065

REACTIONS (5)
  - Hyperglycaemia [Recovered/Resolved]
  - Premature baby [Not Recovered/Not Resolved]
  - Cerebral calcification [Not Recovered/Not Resolved]
  - Enterobacter infection [Recovering/Resolving]
  - Blood creatinine increased [Recovered/Resolved]
